FAERS Safety Report 7889924-0 (Version None)
Quarter: 2011Q4

REPORT INFORMATION
  Report Type: 
  Country: None (occurrence: None)
  Receive Date: 20111103
  Receipt Date: 20111026
  Transmission Date: 20120403
  Serious: Yes (Hospitalization, Other)
  Sender: FDA-Public Use
  Company Number: FR-VERTEX PHARMACEUTICALS INC.-AE-2011-002737

PATIENT
  Sex: Female
  Weight: 70 kg

DRUGS (5)
  1. VX-950 [Suspect]
     Route: 048
     Dates: end: 20111014
  2. VX-950 [Suspect]
     Indication: HEPATITIS C
     Route: 048
     Dates: start: 20110721
  3. PEGASYS [Concomitant]
     Indication: HEPATITIS C
     Dates: start: 20110623
  4. COPEGUS [Concomitant]
     Indication: HEPATITIS C
     Dates: end: 20110623
  5. COPEGUS [Concomitant]

REACTIONS (4)
  - ASTHENIA [None]
  - INAPPROPRIATE SCHEDULE OF DRUG ADMINISTRATION [None]
  - RASH [None]
  - ANAEMIA [None]
